FAERS Safety Report 6388340-0 (Version None)
Quarter: 2009Q4

REPORT INFORMATION
  Report Type: 
  Country: None (occurrence: None)
  Receive Date: 20091005
  Receipt Date: 20090924
  Transmission Date: 20100525
  Serious: Yes (Other)
  Sender: FDA-Public Use
  Company Number: JM-MERCK-0909USA04711

PATIENT
  Age: 76 Year
  Sex: Male

DRUGS (2)
  1. COZAAR [Suspect]
     Route: 048
  2. FUROSEMIDE [Suspect]
     Route: 048

REACTIONS (1)
  - TOXIC EPIDERMAL NECROLYSIS [None]
